FAERS Safety Report 9298114 (Version 1)
Quarter: 2013Q2

REPORT INFORMATION
  Report Type: Report from Study
  Country: CN (occurrence: CN)
  Receive Date: 20130520
  Receipt Date: 20130520
  Transmission Date: 20140414
  Serious: Yes (Hospitalization)
  Sender: FDA-Public Use
  Company Number: CN-ASTELLAS-2013JP005775

PATIENT
  Age: 69 Year
  Sex: Female
  Weight: 69 kg

DRUGS (5)
  1. SOLIFENACIN [Suspect]
     Indication: HYPERTONIC BLADDER
     Dosage: 5 MG, UID/QD
     Route: 048
     Dates: start: 20130401, end: 20130505
  2. SOLIFENACIN [Suspect]
     Dosage: 5 MG, UID/QD
     Route: 048
     Dates: start: 20130507, end: 20130507
  3. SOLIFENACIN [Suspect]
     Dosage: 5 MG, UID/QD
     Route: 048
     Dates: start: 20130510
  4. PROMESTRIENE [Suspect]
     Indication: HYPERTONIC BLADDER
     Dosage: 10 MG, UID/QD
     Route: 067
     Dates: start: 20130401
  5. PROMESTRIENE [Suspect]
     Dosage: UNK
     Route: 067
     Dates: start: 20130510

REACTIONS (1)
  - Cervix carcinoma stage 0 [Recovering/Resolving]
